FAERS Safety Report 25349870 (Version 1)
Quarter: 2025Q2

REPORT INFORMATION
  Report Type: Report from Study
  Country: CL (occurrence: CL)
  Receive Date: 20250523
  Receipt Date: 20250523
  Transmission Date: 20250716
  Serious: Yes (Other)
  Sender: ROCHE
  Company Number: CL-ROCHE-10000286043

PATIENT
  Age: 34 Year
  Sex: Female
  Weight: 61 kg

DRUGS (4)
  1. PERJETA [Suspect]
     Active Substance: PERTUZUMAB
     Indication: HER2 positive breast cancer
     Dosage: ONGOING: YES
     Route: 042
     Dates: start: 20240621
  2. PERJETA [Suspect]
     Active Substance: PERTUZUMAB
     Indication: Metastases to liver
  3. HERCEPTIN [Suspect]
     Active Substance: TRASTUZUMAB
     Indication: HER2 positive breast cancer
     Dosage: ONGOING: YES
     Route: 058
     Dates: start: 20240621
  4. HERCEPTIN [Suspect]
     Active Substance: TRASTUZUMAB
     Indication: Metastases to liver

REACTIONS (4)
  - Thrombosis [Unknown]
  - Headache [Unknown]
  - Metastases to central nervous system [Unknown]
  - Catheter site pain [Unknown]

NARRATIVE: CASE EVENT DATE: 20250501
